FAERS Safety Report 19611303 (Version 1)
Quarter: 2021Q3

REPORT INFORMATION
  Report Type: Spontaneous
  Country: AT (occurrence: AT)
  Receive Date: 20210726
  Receipt Date: 20210726
  Transmission Date: 20211014
  Serious: Yes (Death, Other)
  Sender: FDA-Public Use
  Company Number: NVSC2021AT167564

PATIENT
  Sex: Male

DRUGS (2)
  1. MIDOSTAURIN [Suspect]
     Active Substance: MIDOSTAURIN
     Indication: CHRONIC MYELOMONOCYTIC LEUKAEMIA
     Dosage: UNK
     Route: 065
     Dates: start: 201703
  2. MIDOSTAURIN [Suspect]
     Active Substance: MIDOSTAURIN
     Indication: SYSTEMIC MASTOCYTOSIS

REACTIONS (8)
  - Malignant neoplasm progression [Fatal]
  - Product use in unapproved indication [Unknown]
  - Chronic myelomonocytic leukaemia [Fatal]
  - Systemic mastocytosis [Fatal]
  - Anaemia [Unknown]
  - Nausea [Unknown]
  - Leukocytosis [Unknown]
  - Ascites [Recovered/Resolved]
